FAERS Safety Report 9463518 (Version 2)
Quarter: 2014Q1

REPORT INFORMATION
  Report Type: Spontaneous
  Country: JP (occurrence: JP)
  Receive Date: 20130819
  Receipt Date: 20140131
  Transmission Date: 20141002
  Serious: Yes (Hospitalization, Other)
  Sender: FDA-Public Use
  Company Number: JP-GE HEALTHCARE MEDICAL DIAGNOSTICS-OMPQ-PR-1308S-1012

PATIENT
  Age: 87 Year
  Sex: Male

DRUGS (14)
  1. OMNIPAQUE [Suspect]
     Indication: INGUINAL HERNIA REPAIR
     Route: 042
     Dates: start: 20130629, end: 20130629
  2. OMNIPAQUE [Suspect]
     Indication: DIAGNOSTIC PROCEDURE
  3. CARDENALIN [Concomitant]
     Indication: HYPERTENSION
     Route: 048
     Dates: start: 201212, end: 20130701
  4. COVERSYL [Concomitant]
     Indication: HYPERTENSION
     Route: 048
     Dates: start: 201207, end: 20130701
  5. PLETAAL OD [Concomitant]
     Indication: AORTIC VALVE REPLACEMENT
     Route: 048
  6. PLETAAL OD [Concomitant]
     Indication: POSTOPERATIVE CARE
  7. ADALAT CR [Concomitant]
     Indication: HYPERTENSION
     Route: 048
     Dates: start: 201208, end: 20130701
  8. SELARA [Concomitant]
     Indication: HYPERTENSION
     Route: 048
     Dates: start: 201303, end: 20130701
  9. NEXIUM [Concomitant]
     Indication: GASTROOESOPHAGEAL REFLUX DISEASE
     Route: 048
     Dates: end: 20130701
  10. OLMETEC [Concomitant]
     Indication: HYPERTENSION
     Route: 048
     Dates: end: 20130701
  11. ECARD [Concomitant]
     Indication: HYPERTENSION
     Route: 048
     Dates: end: 20130701
  12. JU-KAMA [Concomitant]
     Indication: CONSTIPATION
     Route: 048
     Dates: end: 20130701
  13. LAC B [Concomitant]
     Indication: CONSTIPATION
     Route: 048
     Dates: end: 20130701
  14. DEPAS [Concomitant]
     Indication: INSOMNIA
     Route: 048
     Dates: end: 20130701

REACTIONS (3)
  - Disseminated intravascular coagulation [Recovered/Resolved]
  - Toxic skin eruption [Recovered/Resolved]
  - Nephropathy toxic [Recovered/Resolved]
